FAERS Safety Report 12352704 (Version 1)
Quarter: 2016Q2

REPORT INFORMATION
  Report Type: Spontaneous
  Country: US (occurrence: US)
  Receive Date: 20160510
  Receipt Date: 20160510
  Transmission Date: 20160815
  Serious: Yes (Other)
  Sender: FDA-Public Use
  Company Number: US-ELI_LILLY_AND_COMPANY-US201604010149

PATIENT
  Age: 71 Year
  Sex: Female
  Weight: 59.42 kg

DRUGS (4)
  1. HUMULIN N [Suspect]
     Active Substance: INSULIN HUMAN
     Indication: TYPE 2 DIABETES MELLITUS
     Dosage: 38 U, BID
     Route: 065
  2. ATORVASTATIN [Concomitant]
     Active Substance: ATORVASTATIN
     Indication: BLOOD CHOLESTEROL
     Dosage: 10 MG, QD
  3. LOSARTAN AND HYDROCHLOROTHIAZIDE [Concomitant]
     Active Substance: HYDROCHLOROTHIAZIDE\LOSARTAN POTASSIUM
     Indication: HYPERTENSION
     Dosage: 12.5 MG, QD
     Route: 048
  4. CHAPSTICK CLASSIC ORIGINAL [Suspect]
     Active Substance: PETROLATUM
     Indication: LIP DRY
     Dosage: UNK, UNKNOWN
     Route: 065

REACTIONS (13)
  - Arthropod bite [Unknown]
  - Malaise [Unknown]
  - Dry mouth [Unknown]
  - Glossodynia [Unknown]
  - Decreased appetite [Unknown]
  - Oral mucosal eruption [Unknown]
  - Thyroid mass [Unknown]
  - Weight decreased [Unknown]
  - Lyme disease [Unknown]
  - Tongue discolouration [Unknown]
  - Oropharyngeal pain [Unknown]
  - Productive cough [Unknown]
  - Intentional product misuse [Unknown]

NARRATIVE: CASE EVENT DATE: 201509
